FAERS Safety Report 11900617 (Version 1)
Quarter: 2016Q1

REPORT INFORMATION
  Report Type: Report from Study
  Country: US (occurrence: US)
  Receive Date: 20160108
  Receipt Date: 20160108
  Transmission Date: 20160526
  Serious: No
  Sender: FDA-Public Use
  Company Number: US-ABBVIE-15P-163-1429489-00

PATIENT
  Age: 53 Year
  Sex: Female

DRUGS (2)
  1. VIEKIRA PAK [Suspect]
     Active Substance: DASABUVIR\OMBITASVIR\PARITAPREVIR\RITONAVIR
     Indication: HEPATITIS C
     Dosage: 2 PINK WITH 1 BEIGE IN AM AND 1 BEIGE IN PM, AS DIRECTED
     Route: 065
     Dates: start: 20150629
  2. RIBASPHERE [Concomitant]
     Active Substance: RIBAVIRIN
     Indication: PRODUCT USED FOR UNKNOWN INDICATION
     Dates: start: 20150629

REACTIONS (9)
  - Influenza like illness [Unknown]
  - Rash erythematous [Unknown]
  - Rash pruritic [Unknown]
  - Headache [Unknown]
  - Fatigue [Unknown]
  - Hallucination [Unknown]
  - Depressed mood [Unknown]
  - Ocular icterus [Unknown]
  - Crying [Unknown]

NARRATIVE: CASE EVENT DATE: 20150629
